FAERS Safety Report 8801803 (Version 2)
Quarter: 2015Q1

REPORT INFORMATION
  Report Type: Report from Study
  Country: US (occurrence: US)
  Receive Date: 20120921
  Receipt Date: 20150320
  Transmission Date: 20150721
  Serious: Yes (Death)
  Sender: FDA-Public Use
  Company Number: US-ROCHE-1123701

PATIENT
  Sex: Female

DRUGS (17)
  1. METHYLPREDNISOLONE. [Concomitant]
     Active Substance: METHYLPREDNISOLONE
     Route: 042
  2. TORADOL [Concomitant]
     Active Substance: KETOROLAC TROMETHAMINE
     Route: 065
  3. RELAFEN [Concomitant]
     Active Substance: NABUMETONE
     Route: 065
  4. TARCEVA [Suspect]
     Active Substance: ERLOTINIB HYDROCHLORIDE
     Indication: PRODUCT USED FOR UNKNOWN INDICATION
     Route: 065
  5. FENTANYL. [Concomitant]
     Active Substance: FENTANYL
     Route: 065
  6. IMODIUM [Concomitant]
     Active Substance: LOPERAMIDE HYDROCHLORIDE
  7. TOPOTECAN [Concomitant]
     Active Substance: TOPOTECAN\TOPOTECAN HYDROCHLORIDE
  8. OXYCODONE [Concomitant]
     Active Substance: OXYCODONE
     Route: 065
  9. ZOLOFT [Concomitant]
     Active Substance: SERTRALINE HYDROCHLORIDE
     Route: 065
  10. REMERON [Concomitant]
     Active Substance: MIRTAZAPINE
  11. AVASTIN [Suspect]
     Active Substance: BEVACIZUMAB
     Indication: MALIGNANT RESPIRATORY TRACT NEOPLASM
     Route: 042
     Dates: start: 20071204
  12. IRINOTECAN [Concomitant]
     Active Substance: IRINOTECAN
     Route: 065
     Dates: start: 20070918, end: 20071113
  13. MOTRIN [Concomitant]
     Active Substance: IBUPROFEN
  14. MORPHINE [Concomitant]
     Active Substance: MORPHINE
  15. XANAX [Concomitant]
     Active Substance: ALPRAZOLAM
  16. TAXOL [Concomitant]
     Active Substance: PACLITAXEL
  17. OXYCONTIN [Concomitant]
     Active Substance: OXYCODONE HYDROCHLORIDE
     Route: 048

REACTIONS (13)
  - Pain [Unknown]
  - Breath sounds abnormal [Unknown]
  - Cough [Unknown]
  - Joint range of motion decreased [Unknown]
  - Joint stiffness [Unknown]
  - Tenderness [Unknown]
  - Metastases to lung [Unknown]
  - Disease progression [Unknown]
  - Death [Fatal]
  - Oedema [Unknown]
  - Vasodilatation [Unknown]
  - Diarrhoea [Unknown]
  - Off label use [Unknown]
